FAERS Safety Report 6862072-4 (Version None)
Quarter: 2010Q3

REPORT INFORMATION
  Report Type: 
  Country: None (occurrence: None)
  Receive Date: 20100721
  Receipt Date: 20100714
  Transmission Date: 20110219
  Serious: Yes (Death)
  Sender: FDA-Public Use
  Company Number: US-BRACCO-004009

PATIENT
  Sex: Male
  Weight: 95 kg

DRUGS (3)
  1. ISOVUE-128 [Suspect]
     Indication: COMPUTERISED TOMOGRAM
     Route: 042
     Dates: start: 20100204, end: 20100204
  2. ISOVUE-128 [Suspect]
     Indication: ABDOMINAL MASS
     Route: 042
     Dates: start: 20100204, end: 20100204
  3. PROPRANOLOL [Concomitant]
     Route: 065

REACTIONS (6)
  - ANAPHYLACTOID REACTION [None]
  - BRADYCARDIA [None]
  - HEPATIC CIRRHOSIS [None]
  - HEPATIC STEATOSIS [None]
  - LYMPHADENOPATHY [None]
  - PULMONARY CONGESTION [None]
